FAERS Safety Report 15882554 (Version 1)
Quarter: 2019Q1

REPORT INFORMATION
  Report Type: Spontaneous
  Country: DE (occurrence: DE)
  Receive Date: 20190129
  Receipt Date: 20190129
  Transmission Date: 20190417
  Serious: Yes (Hospitalization, Other)
  Sender: FDA-Public Use
  Company Number: DE-TEVA-2019-DE-1005133

PATIENT
  Age: 68 Year
  Sex: Female

DRUGS (9)
  1. BISOPROLOL [Concomitant]
     Active Substance: BISOPROLOL
     Dosage: LONG-TERM MEDICATION
  2. EPROSARTAN [Concomitant]
     Active Substance: EPROSARTAN
     Dosage: LONG-TERM MEDICATION
     Route: 065
  3. AMLODIPIN [Concomitant]
     Active Substance: AMLODIPINE BESYLATE
     Dosage: LONG-TERM MEDICATION
  4. ULTIBRO [Concomitant]
     Active Substance: GLYCOPYRRONIUM\INDACATEROL
     Dosage: LONG-TERM MEDICATION
  5. PREDNISOLON [Concomitant]
     Active Substance: PREDNISOLONE
     Indication: DENTAL OPERATION
     Dosage: 80 MILLIGRAM DAILY;
     Route: 065
     Dates: start: 20181019, end: 20181022
  6. BUDIAIR [Concomitant]
     Active Substance: BUDESONIDE
     Dosage: LONG-TERM MEDICATION
     Route: 065
  7. PARACETAMOL [Concomitant]
     Active Substance: ACETAMINOPHEN
     Indication: DENTAL OPERATION
     Dosage: DAILY DOSE: 2000
     Route: 048
     Dates: start: 20181012, end: 20181022
  8. AMOXICLAV [Suspect]
     Active Substance: AMOXICILLIN\CLAVULANATE POTASSIUM
     Indication: DENTAL OPERATION
     Dosage: 875/125 MG
     Route: 048
     Dates: start: 20181019
  9. ASPIRIN. [Concomitant]
     Active Substance: ASPIRIN
     Dosage: LONG-TERM MEDICATION
     Route: 065

REACTIONS (1)
  - Drug-induced liver injury [Not Recovered/Not Resolved]

NARRATIVE: CASE EVENT DATE: 20181215
